FAERS Safety Report 21033623 (Version 1)
Quarter: 2022Q3

REPORT INFORMATION
  Report Type: Spontaneous
  Country: IT (occurrence: IT)
  Receive Date: 20220701
  Receipt Date: 20220701
  Transmission Date: 20221027
  Serious: Yes (Hospitalization)
  Sender: FDA-Public Use
  Company Number: None

PATIENT
  Age: 69 Year
  Sex: Male

DRUGS (3)
  1. LEVOFLOXACIN [Interacting]
     Active Substance: LEVOFLOXACIN
     Indication: Product used for unknown indication
     Dosage: INTERACTING DRUGS
     Route: 065
  2. EDOXABAN TOSYLATE [Interacting]
     Active Substance: EDOXABAN TOSYLATE
     Indication: Product used for unknown indication
     Dosage: INTERACTING DRUGS, STRENGTH, UNIT DOSE : 30MG,FREQUENCY TIME : 1 DAY
  3. NIVOLUMAB [Interacting]
     Active Substance: NIVOLUMAB
     Indication: Product used for unknown indication
     Dosage: UNIT DOSE : 240MG, FREQUENCY TIME : 1 CYCLICAL, INTERACTING DRUGS
     Route: 042
     Dates: start: 20220421

REACTIONS (2)
  - Drug interaction [Recovered/Resolved]
  - Henoch-Schonlein purpura [Recovered/Resolved]

NARRATIVE: CASE EVENT DATE: 20220425
